FAERS Safety Report 23628188 (Version 6)
Quarter: 2024Q2

REPORT INFORMATION
  Report Type: Spontaneous
  Country: ES (occurrence: ES)
  Receive Date: 20240313
  Receipt Date: 20240621
  Transmission Date: 20240716
  Serious: Yes (Other)
  Sender: FDA-Public Use
  Company Number: ES-ELI_LILLY_AND_COMPANY-ES202401002259

PATIENT
  Age: 73 Year
  Sex: Female

DRUGS (4)
  1. ABEMACICLIB [Suspect]
     Active Substance: ABEMACICLIB
     Indication: Breast cancer
     Dosage: 150 MG, UNKNOWN
     Route: 048
     Dates: start: 20231202
  2. ABEMACICLIB [Suspect]
     Active Substance: ABEMACICLIB
     Indication: Breast cancer metastatic
     Dosage: 150 MG, UNKNOWN
     Route: 048
     Dates: start: 20240507
  3. ABEMACICLIB [Suspect]
     Active Substance: ABEMACICLIB
     Dosage: 150 MG, UNKNOWN
     Route: 048
  4. LETROZOLE [Concomitant]
     Active Substance: LETROZOLE
     Indication: Breast cancer
     Dosage: UNK UNK, UNKNOWN
     Route: 065

REACTIONS (43)
  - Glaucoma [Recovering/Resolving]
  - Discouragement [Not Recovered/Not Resolved]
  - Faeces soft [Recovered/Resolved]
  - Peripheral coldness [Recovering/Resolving]
  - Abdominal pain upper [Recovering/Resolving]
  - Feeling abnormal [Recovering/Resolving]
  - Blood iron decreased [Recovering/Resolving]
  - Feeling cold [Recovering/Resolving]
  - Sleep deficit [Recovering/Resolving]
  - Constipation [Recovering/Resolving]
  - Abdominal pain [Recovering/Resolving]
  - Malaise [Recovered/Resolved]
  - Abdominal pain lower [Recovering/Resolving]
  - Constipation [Unknown]
  - Ageusia [Recovered/Resolved]
  - Cataract [Recovering/Resolving]
  - Lymphoedema [Recovering/Resolving]
  - Musculoskeletal pain [Unknown]
  - Decreased immune responsiveness [Recovering/Resolving]
  - Blood iron decreased [Recovering/Resolving]
  - Gastrointestinal motility disorder [Recovering/Resolving]
  - Sensation of foreign body [Recovering/Resolving]
  - Eye inflammation [Recovering/Resolving]
  - Ocular hyperaemia [Recovering/Resolving]
  - Gastrointestinal pain [Recovering/Resolving]
  - Fall [Recovering/Resolving]
  - Ocular discomfort [Recovering/Resolving]
  - Somnolence [Recovering/Resolving]
  - Coccydynia [Recovering/Resolving]
  - Dyschezia [Recovering/Resolving]
  - Faeces hard [Recovering/Resolving]
  - Anxiety [Recovering/Resolving]
  - Proctalgia [Recovering/Resolving]
  - Anal pruritus [Recovering/Resolving]
  - Fatigue [Recovering/Resolving]
  - Dysgeusia [Recovered/Resolved]
  - Decreased appetite [Recovering/Resolving]
  - Platelet count decreased [Recovering/Resolving]
  - Diarrhoea [Recovered/Resolved]
  - Dysgeusia [Recovering/Resolving]
  - Diarrhoea [Recovered/Resolved]
  - Nasopharyngitis [Recovered/Resolved]
  - Anaemia [Recovering/Resolving]

NARRATIVE: CASE EVENT DATE: 20240201
